FAERS Safety Report 5320504-7 (Version None)
Quarter: 2007Q2

REPORT INFORMATION
  Report Type: 
  Country: None (occurrence: None)
  Receive Date: 20070509
  Receipt Date: 20070502
  Transmission Date: 20071010
  Serious: Yes (Other)
  Sender: FDA-Public Use
  Company Number: PHNU2006DE03987

PATIENT
  Age: 80 Year
  Sex: Female
  Weight: 36 kg

DRUGS (4)
  1. ZOMETA [Suspect]
     Indication: MULTIPLE MYELOMA
     Dosage: 4 MG, QMO
     Route: 042
     Dates: start: 20050321, end: 20060803
  2. RADIOTHERAPY [Concomitant]
     Route: 065
     Dates: start: 20050401, end: 20050501
  3. MELPHALAN [Concomitant]
     Indication: MULTIPLE MYELOMA
     Dosage: 15 MG, UNK
     Route: 042
     Dates: start: 20050301, end: 20050501
  4. VELCADE [Concomitant]
     Indication: MULTIPLE MYELOMA
     Dosage: 1.7 MG, UNK
     Route: 042
     Dates: start: 20050811, end: 20061012

REACTIONS (4)
  - JAW DISORDER [None]
  - OSTEONECROSIS [None]
  - PERIODONTITIS [None]
  - TOOTH LOSS [None]
